FAERS Safety Report 9076980 (Version 1)
Quarter: 2013Q1

REPORT INFORMATION
  Report Type: Report from Study
  Country: US (occurrence: US)
  Receive Date: 20130129
  Receipt Date: 20130129
  Transmission Date: 20140127
  Serious: No
  Sender: FDA-Public Use
  Company Number: US-ABBOTT-12P-163-0941060-00

PATIENT
  Age: 65 Year
  Sex: Male

DRUGS (5)
  1. HUMIRA 40 MG/ 0.8 ML PRE-FILLED SYRINGE [Suspect]
     Indication: COLITIS ULCERATIVE
     Dates: start: 20120502, end: 20120502
  2. HUMIRA 40 MG/ 0.8 ML PRE-FILLED SYRINGE [Suspect]
     Dates: start: 20120516, end: 20120516
  3. HUMIRA 40 MG/0.8 ML PEN [Suspect]
     Indication: COLITIS ULCERATIVE
  4. ALEVE [Concomitant]
     Indication: PRODUCT USED FOR UNKNOWN INDICATION
  5. SULFAZINE [Concomitant]
     Indication: COLITIS ULCERATIVE

REACTIONS (3)
  - Injection site erythema [Not Recovered/Not Resolved]
  - Injection site pain [Recovered/Resolved]
  - Injection site erythema [Recovered/Resolved]
